FAERS Safety Report 6850955-0 (Version None)
Quarter: 2010Q3

REPORT INFORMATION
  Report Type: 
  Country: None (occurrence: None)
  Receive Date: 20100716
  Receipt Date: 20071023
  Transmission Date: 20110219
  Serious: No
  Sender: FDA-Public Use
  Company Number: US-PFIZER INC-2007090755

PATIENT
  Sex: Male
  Weight: 76.7 kg

DRUGS (12)
  1. CHANTIX [Suspect]
     Indication: SMOKING CESSATION THERAPY
     Dates: start: 20071017
  2. GEODON [Concomitant]
  3. CELEXA [Concomitant]
  4. REMERON [Concomitant]
  5. XANAX [Concomitant]
  6. ENALAPRIL MALEATE [Concomitant]
  7. ATENOLOL [Concomitant]
  8. DEPAKOTE [Concomitant]
  9. GABITRIL [Concomitant]
  10. AXID [Concomitant]
  11. MACRODANTIN [Concomitant]
  12. REQUIP [Concomitant]

REACTIONS (1)
  - CIRCADIAN RHYTHM SLEEP DISORDER [None]
